FAERS Safety Report 9191737 (Version 1)
Quarter: 2013Q1

REPORT INFORMATION
  Report Type: Spontaneous
  Country: AU (occurrence: AU)
  Receive Date: 20130326
  Receipt Date: 20130326
  Transmission Date: 20140127
  Serious: Yes (Hospitalization, Other)
  Sender: FDA-Public Use
  Company Number: PHHY2012AU053276

PATIENT
  Sex: Male

DRUGS (3)
  1. EXJADE [Suspect]
     Indication: CONGENITAL APLASTIC ANAEMIA
     Dosage: 1.5 G PER DAY
     Route: 048
     Dates: end: 20120628
  2. OSTELIN [Concomitant]
     Dosage: 1000 IU, UNK
  3. BISPHOSPHONATES [Concomitant]
     Route: 042

REACTIONS (3)
  - Fanconi syndrome acquired [Recovered/Resolved]
  - Renal failure [Recovered/Resolved]
  - Electrolyte imbalance [Recovered/Resolved]
